FAERS Safety Report 9272501 (Version 1)
Quarter: 2013Q2

REPORT INFORMATION
  Report Type: Spontaneous
  Country: CA (occurrence: CA)
  Receive Date: 20130506
  Receipt Date: 20130506
  Transmission Date: 20140414
  Serious: Yes (Other)
  Sender: FDA-Public Use
  Company Number: CA-GLAXOSMITHKLINE-A1022407A

PATIENT
  Sex: Male

DRUGS (1)
  1. ADVAIR [Suspect]
     Indication: PNEUMONIA
     Dosage: 1PUFF TWICE PER DAY
     Route: 055
     Dates: start: 2008

REACTIONS (5)
  - Pneumonia [Unknown]
  - Neoplasm malignant [Unknown]
  - Gastric operation [Unknown]
  - Lung disorder [Unknown]
  - Dyspnoea [Unknown]
